FAERS Safety Report 17394441 (Version 1)
Quarter: 2020Q1

REPORT INFORMATION
  Report Type: Spontaneous
  Country: LT (occurrence: LT)
  Receive Date: 20200210
  Receipt Date: 20200210
  Transmission Date: 20200409
  Serious: Yes (Hospitalization)
  Sender: FDA-Public Use
  Company Number: LT-TEVA-2020-LT-1183232

PATIENT
  Age: 78 Year
  Sex: Female
  Weight: 70 kg

DRUGS (1)
  1. QUETIAPINE. [Suspect]
     Active Substance: QUETIAPINE
     Indication: INTENTIONAL OVERDOSE
     Route: 048
     Dates: start: 20200117, end: 20200117

REACTIONS (3)
  - Somnolence [Recovered/Resolved]
  - Intentional overdose [Recovered/Resolved]
  - Asthenia [Recovered/Resolved]

NARRATIVE: CASE EVENT DATE: 20200117
